FAERS Safety Report 24581654 (Version 3)
Quarter: 2024Q4

REPORT INFORMATION
  Report Type: Spontaneous
  Country: DO (occurrence: DO)
  Receive Date: 20241105
  Receipt Date: 20241227
  Transmission Date: 20250114
  Serious: No
  Sender: PFIZER
  Company Number: DO-PFIZER INC-PV202400140980

PATIENT
  Age: 11 Year
  Sex: Male

DRUGS (1)
  1. GENOTROPIN [Suspect]
     Active Substance: SOMATROPIN
     Dosage: 1.8 MG, DAILY

REACTIONS (2)
  - Device information output issue [Unknown]
  - Incorrect dose administered by device [Unknown]

NARRATIVE: CASE EVENT DATE: 20241028
